FAERS Safety Report 12390184 (Version 1)
Quarter: 2016Q2

REPORT INFORMATION
  Report Type: Spontaneous
  Country: US (occurrence: US)
  Receive Date: 20160520
  Receipt Date: 20160520
  Transmission Date: 20160815
  Serious: No
  Sender: FDA-Public Use
  Company Number: US-ASTRAZENECA-2016SE50129

PATIENT
  Sex: Female

DRUGS (2)
  1. MOVANTIK [Suspect]
     Active Substance: NALOXEGOL OXALATE
     Route: 048
  2. MOVANTIK [Suspect]
     Active Substance: NALOXEGOL OXALATE
     Dosage: SPLIT 25 MG TABLET IN A HALF
     Route: 048

REACTIONS (6)
  - Diarrhoea [Unknown]
  - Off label use [Unknown]
  - Malaise [Unknown]
  - Coeliac disease [Unknown]
  - Dizziness [Unknown]
  - Nausea [Unknown]
